FAERS Safety Report 25890525 (Version 1)
Quarter: 2025Q4

REPORT INFORMATION
  Report Type: Spontaneous
  Country: US (occurrence: None)
  Receive Date: 20251006
  Receipt Date: 20251006
  Transmission Date: 20260117
  Serious: Yes (Death)
  Sender: FDA-CTU
  Company Number: None

PATIENT
  Age: 67 Year
  Sex: Male
  Weight: 80 kg

DRUGS (1)
  1. MIRCERA [Suspect]
     Active Substance: METHOXY POLYETHYLENE GLYCOL-EPOETIN BETA
     Indication: Nephrogenic anaemia
     Dosage: 50 UG MICROGRAM(S) EVERY 2 WEKS INTRAVENOUS BOLUS?
     Route: 040
     Dates: start: 20250927, end: 20250927

REACTIONS (6)
  - Dialysis [None]
  - Infusion related reaction [None]
  - Flushing [None]
  - Agonal respiration [None]
  - Blood pressure decreased [None]
  - Cold sweat [None]

NARRATIVE: CASE EVENT DATE: 20250927
